FAERS Safety Report 15358256 (Version 1)
Quarter: 2018Q3

REPORT INFORMATION
  Report Type: Spontaneous
  Country: US (occurrence: US)
  Receive Date: 20180830
  Receipt Date: 20180830
  Transmission Date: 20181010
  Serious: Yes (Hospitalization)
  Sender: FDA-Public Use
  Company Number: None

PATIENT
  Age: 49 Year
  Sex: Female

DRUGS (18)
  1. AUGMENTIN [Concomitant]
     Active Substance: AMOXICILLIN\CLAVULANATE POTASSIUM
  2. AMLODIPINE [Concomitant]
     Active Substance: AMLODIPINE BESYLATE
  3. ACTEMRA [Suspect]
     Active Substance: TOCILIZUMAB
     Indication: SYSTEMIC SCLERODERMA
     Route: 058
     Dates: start: 20180719
  4. OPSUMIT [Concomitant]
     Active Substance: MACITENTAN
  5. CELEBREX [Concomitant]
     Active Substance: CELECOXIB
  6. LISINOPRIL. [Concomitant]
     Active Substance: LISINOPRIL
  7. ACYCLOVIR. [Concomitant]
     Active Substance: ACYCLOVIR
  8. ASPIRIN. [Concomitant]
     Active Substance: ASPIRIN
  9. METFORMIN [Concomitant]
     Active Substance: METFORMIN HYDROCHLORIDE
  10. MYCOPHENOLATE [Concomitant]
     Active Substance: MYCOPHENOLIC ACID
  11. GABAPENTIN. [Concomitant]
     Active Substance: GABAPENTIN
  12. LANTUS [Concomitant]
     Active Substance: INSULIN GLARGINE
  13. NEXIUM [Concomitant]
     Active Substance: ESOMEPRAZOLE MAGNESIUM
  14. SULFAMETHOX [Concomitant]
  15. HYDROCO/APAP [Concomitant]
     Active Substance: ACETAMINOPHEN\HYDROCODONE
  16. LASIX [Concomitant]
     Active Substance: FUROSEMIDE
  17. PREDNISONE. [Concomitant]
     Active Substance: PREDNISONE
  18. TYLENOL [Concomitant]
     Active Substance: ACETAMINOPHEN

REACTIONS (5)
  - Drug dose omission [None]
  - Insurance issue [None]
  - Pulmonary oedema [None]
  - Pulmonary arterial hypertension [None]
  - Condition aggravated [None]
